FAERS Safety Report 8270862-9 (Version None)
Quarter: 2012Q2

REPORT INFORMATION
  Report Type: 
  Country: None (occurrence: None)
  Receive Date: 20120410
  Receipt Date: 20120410
  Transmission Date: 20120825
  Serious: No
  Sender: FDA-Public Use
  Company Number: None

PATIENT
  Age: 35 Year
  Sex: Male
  Weight: 97.522 kg

DRUGS (1)
  1. CELEXA [Suspect]
     Indication: ANXIETY
     Dates: start: 20120320, end: 20120408

REACTIONS (7)
  - OVERDOSE [None]
  - SKIN WARM [None]
  - BLOOD PRESSURE INCREASED [None]
  - FEELING ABNORMAL [None]
  - CARDIAC FLUTTER [None]
  - DRUG DISPENSING ERROR [None]
  - ERYTHEMA [None]
